FAERS Safety Report 20628586 (Version 3)
Quarter: 2022Q2

REPORT INFORMATION
  Report Type: Report from Study
  Country: CA (occurrence: CA)
  Receive Date: 20220323
  Receipt Date: 20220617
  Transmission Date: 20220721
  Serious: Yes (Other)
  Sender: FDA-Public Use
  Company Number: CA-NOVARTISPH-NVSC2022CA060869

PATIENT
  Sex: Female

DRUGS (4)
  1. HYRIMOZ [Suspect]
     Active Substance: ADALIMUMAB-ADAZ
     Indication: Crohn^s disease
     Dosage: 40 MG
     Route: 058
     Dates: start: 20210616
  2. HYRIMOZ [Suspect]
     Active Substance: ADALIMUMAB-ADAZ
     Dosage: 40 MG, QW (ON WED)
     Route: 065
     Dates: start: 20220309
  3. HYRIMOZ [Suspect]
     Active Substance: ADALIMUMAB-ADAZ
     Dosage: 40 MG
     Route: 058
  4. ENTOCORT [Concomitant]
     Active Substance: BUDESONIDE
     Indication: Intestinal obstruction
     Dosage: UNK
     Route: 065

REACTIONS (12)
  - Pyoderma gangrenosum [Unknown]
  - Intestinal obstruction [Unknown]
  - Uveitis [Unknown]
  - Diarrhoea [Unknown]
  - Arthralgia [Unknown]
  - Erythema nodosum [Unknown]
  - Aphthous ulcer [Unknown]
  - Anal fissure [Unknown]
  - Fistula [Unknown]
  - Abscess [Unknown]
  - Gastrointestinal scarring [Unknown]
  - Weight decreased [Unknown]
